FAERS Safety Report 23656127 (Version 2)
Quarter: 2025Q3

REPORT INFORMATION
  Report Type: Report from Study
  Country: US (occurrence: US)
  Receive Date: 20240321
  Receipt Date: 20250725
  Transmission Date: 20251020
  Serious: Yes (Disabling)
  Sender: SANOFI AVENTIS
  Company Number: US-SA-SAC20240228000908

PATIENT
  Age: 84 Year
  Sex: Male

DRUGS (3)
  1. DUPILUMAB [Suspect]
     Active Substance: DUPILUMAB
     Indication: Dermatitis atopic
     Route: 058
     Dates: start: 20231201, end: 20231201
  2. DUPILUMAB [Suspect]
     Active Substance: DUPILUMAB
     Dosage: 300 MG, QOW
     Route: 058
     Dates: start: 202312, end: 20240110
  3. PLAVIX [Concomitant]
     Active Substance: CLOPIDOGREL BISULFATE

REACTIONS (6)
  - Cardiac assistance device user [Unknown]
  - Hypertension [Unknown]
  - Skin ulcer [Unknown]
  - Pruritus [Unknown]
  - Accidental exposure to product [Unknown]
  - Exposure via skin contact [Unknown]

NARRATIVE: CASE EVENT DATE: 20240313
